FAERS Safety Report 15276344 (Version 1)
Quarter: 2018Q3

REPORT INFORMATION
  Report Type: Spontaneous
  Country: IN (occurrence: IN)
  Receive Date: 20180814
  Receipt Date: 20180814
  Transmission Date: 20181010
  Serious: Yes (Hospitalization)
  Sender: FDA-Public Use
  Company Number: IN-MYLANLABS-2018M1060612

PATIENT
  Age: 38 Year
  Sex: Female

DRUGS (8)
  1. ISONIAZID. [Suspect]
     Active Substance: ISONIAZID
     Indication: EVIDENCE BASED TREATMENT
     Dosage: CONTINUATION PHASE FOR ANOTHER 4 MONTHS; WITH RIFAMPICIN AND ETHAMBUTOL
     Route: 065
  2. RIFAMPICIN [Suspect]
     Active Substance: RIFAMPIN
     Indication: TUBERCULOSIS
     Dosage: FOR THE FIRST 2 MONTHS; IN COMBINATION WITH ISONIAZID, PYRAZINAMIDE AND ETHAMBUTOL
     Route: 065
  3. PYRAZINAMIDE. [Suspect]
     Active Substance: PYRAZINAMIDE
     Indication: EVIDENCE BASED TREATMENT
  4. PYRAZINAMIDE. [Suspect]
     Active Substance: PYRAZINAMIDE
     Indication: TUBERCULOSIS
     Dosage: COMBINATION WITH ISONIAZID, RIFAMPICIN AND ETHAMBUTOL
     Route: 065
  5. ISONIAZID. [Suspect]
     Active Substance: ISONIAZID
     Indication: TUBERCULOSIS
     Dosage: FOR THE FIRST 2 MONTHS; IN COMBINATIONWITH RIFAMPICIN, PYRAZINAMIDE AND ETHAMBUTOL
     Route: 065
  6. ETHAMBUTOL [Concomitant]
     Active Substance: ETHAMBUTOL HYDROCHLORIDE
     Indication: TUBERCULOSIS
     Dosage: FOR THE FIRST 2 MONTHS; IN COMBINATION WITH ISONIAZID, RIFAMPICIN AND PYRAZINAMIDE
     Route: 065
  7. RIFAMPICIN [Suspect]
     Active Substance: RIFAMPIN
     Indication: EVIDENCE BASED TREATMENT
     Dosage: FOR ANOTHER 4 MONTHS; CONTINUATION PHASE WITH ISONIAZID AND ETHAMBUTOL
     Route: 065
  8. ETHAMBUTOL [Concomitant]
     Active Substance: ETHAMBUTOL HYDROCHLORIDE
     Indication: EVIDENCE BASED TREATMENT
     Dosage: FOR ANOTHER 4 MONTHS; IN CONTINUATION PHASE WITH ISONIAZID AND RIFAMPICIN
     Route: 065

REACTIONS (4)
  - Drug-induced liver injury [Recovering/Resolving]
  - Hepatic failure [Recovering/Resolving]
  - Ascites [Recovering/Resolving]
  - Pleural effusion [Unknown]
